FAERS Safety Report 17075182 (Version 18)
Quarter: 2025Q2

REPORT INFORMATION
  Report Type: Spontaneous
  Country: SK (occurrence: SK)
  Receive Date: 20191126
  Receipt Date: 20250610
  Transmission Date: 20250716
  Serious: Yes (Hospitalization, Other)
  Sender: MYLAN
  Company Number: SK-PFIZER INC-2019264310

PATIENT
  Age: 53 Year
  Sex: Female

DRUGS (57)
  1. DOCETAXEL [Suspect]
     Active Substance: DOCETAXEL
     Indication: Breast cancer
  2. DOCETAXEL [Suspect]
     Active Substance: DOCETAXEL
     Indication: Chemotherapy
  3. LETROZOLE [Suspect]
     Active Substance: LETROZOLE
     Indication: Breast cancer
  4. DOXORUBICIN [Suspect]
     Active Substance: DOXORUBICIN
     Indication: Breast cancer
  5. IVABRADINE [Suspect]
     Active Substance: IVABRADINE
     Indication: Cardiac failure chronic
  6. IVABRADINE [Suspect]
     Active Substance: IVABRADINE
     Indication: Diuretic therapy
  7. IVABRADINE [Suspect]
     Active Substance: IVABRADINE
     Indication: Dilated cardiomyopathy
  8. EPLERENONE [Suspect]
     Active Substance: EPLERENONE
     Indication: Dilated cardiomyopathy
  9. EPLERENONE [Suspect]
     Active Substance: EPLERENONE
     Indication: Cardiac failure chronic
  10. TRASTUZUMAB [Suspect]
     Active Substance: TRASTUZUMAB
     Indication: Breast cancer
  11. TRASTUZUMAB [Suspect]
     Active Substance: TRASTUZUMAB
     Indication: Chemotherapy
  12. METOPROLOL TARTRATE [Suspect]
     Active Substance: METOPROLOL TARTRATE
     Indication: Cardiac failure chronic
  13. METOPROLOL TARTRATE [Suspect]
     Active Substance: METOPROLOL TARTRATE
     Indication: Dilated cardiomyopathy
  14. ADRIAMYCIN [Suspect]
     Active Substance: DOXORUBICIN HYDROCHLORIDE
     Indication: Breast cancer
  15. ADRIAMYCIN [Suspect]
     Active Substance: DOXORUBICIN HYDROCHLORIDE
     Indication: Breast cancer
  16. ADRIAMYCIN [Suspect]
     Active Substance: DOXORUBICIN HYDROCHLORIDE
     Indication: Chemotherapy
  17. CYCLOPHOSPHAMIDE [Suspect]
     Active Substance: CYCLOPHOSPHAMIDE
     Indication: Breast cancer
  18. CYCLOPHOSPHAMIDE [Suspect]
     Active Substance: CYCLOPHOSPHAMIDE
     Indication: Chemotherapy
  19. FUROSEMIDE [Suspect]
     Active Substance: FUROSEMIDE
     Indication: Diuretic therapy
  20. FUROSEMIDE [Suspect]
     Active Substance: FUROSEMIDE
     Indication: Dilated cardiomyopathy
  21. FUROSEMIDE [Suspect]
     Active Substance: FUROSEMIDE
     Indication: Cardiac failure chronic
  22. CANDESARTAN [Suspect]
     Active Substance: CANDESARTAN
     Indication: Cardiac failure chronic
  23. CANDESARTAN [Suspect]
     Active Substance: CANDESARTAN
     Indication: Dilated cardiomyopathy
  24. CANDESARTAN [Suspect]
     Active Substance: CANDESARTAN
  25. CARVEDILOL [Concomitant]
     Active Substance: CARVEDILOL
     Indication: Product used for unknown indication
  26. CARVEDILOL [Concomitant]
     Active Substance: CARVEDILOL
  27. COENZYME Q10 [Concomitant]
     Active Substance: DIETARY SUPPLEMENT\UBIDECARENONE
     Indication: Product used for unknown indication
  28. COENZYME Q10 [Concomitant]
     Active Substance: DIETARY SUPPLEMENT\UBIDECARENONE
  29. SPIRONOLACTONE [Concomitant]
     Active Substance: SPIRONOLACTONE
     Indication: Product used for unknown indication
  30. SPIRONOLACTONE [Concomitant]
     Active Substance: SPIRONOLACTONE
  31. Neoton [Concomitant]
     Indication: Product used for unknown indication
  32. Neoton [Concomitant]
  33. NOREPINEPHRINE [Concomitant]
     Active Substance: NOREPINEPHRINE
     Indication: Product used for unknown indication
  34. NOREPINEPHRINE [Concomitant]
     Active Substance: NOREPINEPHRINE
  35. TRANDOLAPRIL [Concomitant]
     Active Substance: TRANDOLAPRIL
     Indication: Product used for unknown indication
  36. TRANDOLAPRIL [Concomitant]
     Active Substance: TRANDOLAPRIL
  37. SACUBITRIL\VALSARTAN [Concomitant]
     Active Substance: SACUBITRIL\VALSARTAN
     Indication: Product used for unknown indication
  38. SACUBITRIL\VALSARTAN [Concomitant]
     Active Substance: SACUBITRIL\VALSARTAN
  39. ALLOPURINOL [Concomitant]
     Active Substance: ALLOPURINOL
     Indication: Product used for unknown indication
  40. ALLOPURINOL [Concomitant]
     Active Substance: ALLOPURINOL
  41. LEVOSIMENDAN [Concomitant]
     Active Substance: LEVOSIMENDAN
     Indication: Product used for unknown indication
  42. LEVOSIMENDAN [Concomitant]
     Active Substance: LEVOSIMENDAN
  43. MAGNESIUM [Concomitant]
     Active Substance: MAGNESIUM
     Indication: Product used for unknown indication
  44. MAGNESIUM [Concomitant]
     Active Substance: MAGNESIUM
  45. NALOXONE HYDROCHLORIDE\OXYCODONE HYDROCHLORIDE [Concomitant]
     Active Substance: NALOXONE HYDROCHLORIDE\OXYCODONE HYDROCHLORIDE
     Indication: Product used for unknown indication
  46. NALOXONE HYDROCHLORIDE\OXYCODONE HYDROCHLORIDE [Concomitant]
     Active Substance: NALOXONE HYDROCHLORIDE\OXYCODONE HYDROCHLORIDE
  47. ACETAMINOPHEN [Concomitant]
     Active Substance: ACETAMINOPHEN
     Indication: Product used for unknown indication
  48. ACETAMINOPHEN [Concomitant]
     Active Substance: ACETAMINOPHEN
  49. RIVAROXABAN [Concomitant]
     Active Substance: RIVAROXABAN
     Indication: Product used for unknown indication
  50. RIVAROXABAN [Concomitant]
     Active Substance: RIVAROXABAN
  51. METAMIZOLE [Concomitant]
     Active Substance: METAMIZOLE
     Indication: Product used for unknown indication
  52. METAMIZOLE [Concomitant]
     Active Substance: METAMIZOLE
  53. TRIMETAZIDINE [Concomitant]
     Active Substance: TRIMETAZIDINE
     Indication: Product used for unknown indication
  54. TRIMETAZIDINE [Concomitant]
     Active Substance: TRIMETAZIDINE
  55. LEVOCARNITINE [Concomitant]
     Active Substance: LEVOCARNITINE
     Indication: Product used for unknown indication
  56. LEVOCARNITINE [Concomitant]
     Active Substance: LEVOCARNITINE
  57. NALOXONE [Concomitant]
     Active Substance: NALOXONE
     Indication: Product used for unknown indication

REACTIONS (14)
  - Dilated cardiomyopathy [Recovering/Resolving]
  - Orthopnoea [Recovering/Resolving]
  - Tachypnoea [Recovering/Resolving]
  - Ventricular hypokinesia [Recovering/Resolving]
  - Pulmonary congestion [Recovering/Resolving]
  - Cardiotoxicity [Recovering/Resolving]
  - Obesity [Unknown]
  - Spinal pain [Unknown]
  - Cardiac failure chronic [Recovering/Resolving]
  - Dyspnoea [Recovering/Resolving]
  - Dizziness [Recovered/Resolved]
  - Fatigue [Recovering/Resolving]
  - Cough [Recovering/Resolving]
  - Oedema peripheral [Recovering/Resolving]

NARRATIVE: CASE EVENT DATE: 20160301
